FAERS Safety Report 7896045-X (Version None)
Quarter: 2011Q4

REPORT INFORMATION
  Report Type: 
  Country: None (occurrence: None)
  Receive Date: 20111106
  Receipt Date: 20110902
  Transmission Date: 20120403
  Serious: No
  Sender: FDA-Public Use
  Company Number: US-AMGEN-USASP2011045284

PATIENT
  Age: 71 Year
  Sex: Male

DRUGS (17)
  1. ZAROXOLYN [Concomitant]
  2. COLCRYS [Concomitant]
  3. IPRATROPIUM BROMIDE AND ALBUTEROL SULFATE [Concomitant]
  4. ALLOPURINOL [Concomitant]
  5. CELEBREX [Concomitant]
  6. LANTUS [Concomitant]
  7. JANUVIA [Concomitant]
  8. BACLOFEN [Concomitant]
  9. LIPITOR [Concomitant]
     Dosage: UNK MG, UNK
  10. PERCOCET [Concomitant]
  11. FUROSEMIDE [Concomitant]
  12. CARVEDILOL [Concomitant]
  13. ENBREL [Suspect]
     Indication: RHEUMATOID ARTHRITIS
     Dosage: 50 MG, QWK
  14. LEFLUNOMIDE [Concomitant]
  15. PREDNISONE [Concomitant]
  16. VENTOLIN HFA [Concomitant]
  17. HUMULIN 70/30 [Concomitant]

REACTIONS (1)
  - HERPES ZOSTER [None]
